FAERS Safety Report 7536605-9 (Version None)
Quarter: 2011Q2

REPORT INFORMATION
  Report Type: 
  Country: None (occurrence: None)
  Receive Date: 20110609
  Receipt Date: 20110603
  Transmission Date: 20111010
  Serious: Yes (Hospitalization)
  Sender: FDA-Public Use
  Company Number: JP-PFIZER INC-2011047431

PATIENT
  Age: 68 Year
  Sex: Male
  Weight: 63 kg

DRUGS (10)
  1. BEHYD [Concomitant]
     Indication: HYPERTENSION
     Dosage: 2 MG, 1X/DAY
     Route: 048
     Dates: start: 19810101
  2. DIOVAN [Concomitant]
     Indication: HYPERTENSION
     Dosage: 80 MG, 1X/DAY
     Route: 048
     Dates: start: 19810101
  3. LANSOPRAZOLE [Concomitant]
     Indication: PROPHYLAXIS AGAINST GASTROINTESTINAL ULCER
     Dosage: 15 MG, 1X/DAY
     Route: 048
     Dates: start: 20101217
  4. PREDNISOLONE [Concomitant]
     Indication: RHEUMATOID ARTHRITIS
     Dosage: 2.5 MG, 1X/DAY
     Route: 048
     Dates: start: 20101217
  5. AMLODIPINE [Concomitant]
     Indication: HYPERTENSION
     Dosage: 5 MG, 1X/DAY
     Route: 048
     Dates: start: 19810101
  6. CLARITHROMYCIN [Concomitant]
     Indication: PYREXIA
     Dosage: 400 MG, 1X/DAY
     Route: 048
     Dates: start: 20110131
  7. ACETAMINOPHEN [Concomitant]
     Indication: PYREXIA
     Dosage: 400 MG, 1X/DAY
     Route: 048
     Dates: start: 20110131
  8. AZULFIDINE [Suspect]
     Indication: RHEUMATOID ARTHRITIS
     Dosage: 500 MG, 2X/DAY
     Route: 048
     Dates: start: 20101217
  9. ATENOLOL [Concomitant]
     Indication: HYPERTENSION
     Dosage: 50 MG, 1X/DAY
     Route: 048
     Dates: start: 19810101
  10. ASTOMIN [Concomitant]
     Dosage: 20 MG, 3X/DAY
     Route: 048

REACTIONS (3)
  - AGRANULOCYTOSIS [None]
  - WHITE BLOOD CELL COUNT DECREASED [None]
  - PNEUMONIA BACTERIAL [None]
